FAERS Safety Report 6231517-5 (Version None)
Quarter: 2009Q2

REPORT INFORMATION
  Report Type: 
  Country: None (occurrence: None)
  Receive Date: 20090616
  Receipt Date: 20090608
  Transmission Date: 20091009
  Serious: Yes (Hospitalization)
  Sender: FDA-Public Use
  Company Number: B0577879A

PATIENT
  Sex: Female

DRUGS (3)
  1. AMOXICILLIN TRIHYDRATE [Suspect]
     Dosage: 1G TWICE PER DAY
     Route: 048
     Dates: start: 20090110, end: 20090121
  2. CIFLOX [Suspect]
     Dosage: 500MG TWICE PER DAY
     Route: 048
     Dates: start: 20090110, end: 20090121
  3. INIPOMP [Suspect]
     Dosage: 40MG TWICE PER DAY
     Route: 048
     Dates: start: 20090110, end: 20090121

REACTIONS (13)
  - ARTHRALGIA [None]
  - ERYTHROMELALGIA [None]
  - FEELING ABNORMAL [None]
  - FEELING DRUNK [None]
  - GAIT DISTURBANCE [None]
  - LIGAMENT PAIN [None]
  - MUSCLE SPASMS [None]
  - MUSCULOSKELETAL DISCOMFORT [None]
  - PAIN IN EXTREMITY [None]
  - PARAESTHESIA [None]
  - PHOTOPHOBIA [None]
  - TENDON DISORDER [None]
  - TENDON PAIN [None]
